FAERS Safety Report 25436405 (Version 1)
Quarter: 2025Q2

REPORT INFORMATION
  Report Type: Other
  Country: SK (occurrence: SK)
  Receive Date: 20250614
  Receipt Date: 20250614
  Transmission Date: 20250716
  Serious: Yes (Life-Threatening, Other)
  Sender: B BRAUN
  Company Number: SK-B.Braun Medical Inc.-2178706

PATIENT
  Age: 21 Year
  Sex: Male

DRUGS (1)
  1. HEPARIN SODIUM IN DEXTROSE [Suspect]
     Active Substance: HEPARIN SODIUM
     Indication: Thrombosis

REACTIONS (2)
  - Cardiac tamponade [Not Recovered/Not Resolved]
  - Embolism [Not Recovered/Not Resolved]
